FAERS Safety Report 6174016-1 (Version None)
Quarter: 2009Q2

REPORT INFORMATION
  Report Type: 
  Country: None (occurrence: None)
  Receive Date: 20090430
  Receipt Date: 20080922
  Transmission Date: 20091009
  Serious: No
  Sender: FDA-Public Use
  Company Number: US-ASTRAZENECA-2007UW27659

PATIENT
  Age: 87 Year
  Sex: Female
  Weight: 45.4 kg

DRUGS (7)
  1. NEXIUM [Suspect]
     Indication: GASTROOESOPHAGEAL REFLUX DISEASE
     Route: 048
  2. NEXIUM [Suspect]
     Route: 048
     Dates: start: 20080601
  3. BONIVA [Concomitant]
  4. LASIX [Concomitant]
  5. ALDACTONE [Concomitant]
  6. PLAQUENIL [Concomitant]
  7. VITAMINS [Concomitant]

REACTIONS (4)
  - ABDOMINAL DISTENSION [None]
  - DRUG INEFFECTIVE [None]
  - FLATULENCE [None]
  - FREQUENT BOWEL MOVEMENTS [None]
